FAERS Safety Report 18654390 (Version 1)
Quarter: 2020Q4

REPORT INFORMATION
  Report Type: Spontaneous
  Country: US (occurrence: US)
  Receive Date: 20201223
  Receipt Date: 20201223
  Transmission Date: 20210114
  Serious: Yes (Congenital Anomaly)
  Sender: FDA-Public Use
  Company Number: None

PATIENT
  Age: 6 Week
  Sex: Male
  Weight: 3.7 kg

DRUGS (2)
  1. PROPECIA [Suspect]
     Active Substance: FINASTERIDE
     Indication: ALOPECIA
     Dates: start: 20150801, end: 20201212
  2. NAK SCALP TO HAIR [SAW PALMETTO] [Suspect]
     Active Substance: HERBALS\SAW PALMETTO
     Indication: ALOPECIA
     Dates: start: 20181001, end: 20201202

REACTIONS (4)
  - Scrotal disorder [None]
  - Cryptorchism [None]
  - Maternal drugs affecting foetus [None]
  - Congenital genitourinary abnormality [None]

NARRATIVE: CASE EVENT DATE: 20201111
